FAERS Safety Report 5632547-4 (Version None)
Quarter: 2008Q1

REPORT INFORMATION
  Report Type: 
  Country: None (occurrence: None)
  Receive Date: 20080220
  Receipt Date: 20080205
  Transmission Date: 20080703
  Serious: Yes (Hospitalization)
  Sender: FDA-Public Use
  Company Number: ES-GENENTECH-255879

PATIENT
  Age: 48 Year
  Sex: Female

DRUGS (2)
  1. AVASTIN [Suspect]
     Indication: BREAST CANCER METASTATIC
     Dosage: 15 MG/KG, UNK
     Dates: start: 20060415
  2. CAPECITABINE [Suspect]
     Indication: BREAST CANCER METASTATIC
     Dosage: 2500 MG/M2, UNK
     Dates: start: 20060415

REACTIONS (5)
  - CARDIAC FAILURE [None]
  - HEPATIC FUNCTION ABNORMAL [None]
  - OEDEMA [None]
  - PLEURAL EFFUSION [None]
  - PULMONARY EMBOLISM [None]
